FAERS Safety Report 9384212 (Version 1)
Quarter: 2013Q3

REPORT INFORMATION
  Report Type: Spontaneous
  Country: US (occurrence: None)
  Receive Date: 20130702
  Receipt Date: 20130702
  Transmission Date: 20140515
  Serious: Yes (Hospitalization)
  Sender: FDA-Public Use
  Company Number: None

PATIENT
  Age: 59 Year
  Sex: Male

DRUGS (3)
  1. PEGASYS PROCLICK [Suspect]
     Indication: HEPATITIS C
     Dosage: SQ
  2. INCIVEK [Suspect]
     Indication: HEPATITIS C
     Route: 048
  3. RIBAPAK [Concomitant]

REACTIONS (4)
  - Lethargy [None]
  - Gait disturbance [None]
  - Depressed level of consciousness [None]
  - Hepatic encephalopathy [None]
